FAERS Safety Report 8179735-3 (Version None)
Quarter: 2012Q1

REPORT INFORMATION
  Report Type: 
  Country: None (occurrence: None)
  Receive Date: 20120229
  Receipt Date: 20120217
  Transmission Date: 20120608
  Serious: Yes (Hospitalization, Other)
  Sender: FDA-Public Use
  Company Number: TPA2008A00645

PATIENT
  Age: 67 Year
  Sex: Male
  Weight: 102.5129 kg

DRUGS (9)
  1. ACTOS [Suspect]
     Indication: TYPE 2 DIABETES MELLITUS
     Dosage: 15 MG, 1 IN 1 D, PER ORAL
     Route: 048
     Dates: start: 20050516, end: 20080430
  2. TOPROL-XL [Concomitant]
  3. LASIX [Concomitant]
  4. PLAVIX [Concomitant]
  5. CADUET [Concomitant]
  6. GLIPIZIDE ER (GLIPIZIDE) [Concomitant]
  7. SPIRIVA [Concomitant]
  8. FISH OIL (FISH OIL) [Concomitant]
  9. FLUTICASONE PROPIONATE [Concomitant]

REACTIONS (2)
  - BLADDER CANCER [None]
  - PROSTATE CANCER [None]
